FAERS Safety Report 9731482 (Version 2)
Quarter: 2013Q4

REPORT INFORMATION
  Report Type: Spontaneous
  Country: CA (occurrence: CA)
  Receive Date: 20131205
  Receipt Date: 20131205
  Transmission Date: 20140711
  Serious: Yes (Disabling)
  Sender: FDA-Public Use
  Company Number: CA-ASTRAZENECA-2013SE78559

PATIENT
  Age: 77 Year
  Sex: Female
  Weight: 74.8 kg

DRUGS (5)
  1. SYMBICORT TURBUHALER [Suspect]
     Dosage: 1 PUFF, BID
     Route: 055
  2. SYMBICORT TURBUHALER [Suspect]
     Route: 055
  3. SINGULAIR [Concomitant]
     Dosage: 1 PIL, HS (AT NIGHT)
  4. MICARDIS [Concomitant]
     Indication: HYPERTENSION
     Dosage: 1/2 80/12.5 MG, DAILY
  5. SPIRIVA [Concomitant]

REACTIONS (5)
  - Dyspnoea [Recovered/Resolved]
  - Dyspnoea exertional [Recovered/Resolved]
  - Choking [Recovered/Resolved]
  - Hypertension [Recovered/Resolved]
  - Intentional drug misuse [Unknown]
